FAERS Safety Report 5202942-6 (Version None)
Quarter: 2006Q4

REPORT INFORMATION
  Report Type: 
  Country: None (occurrence: None)
  Receive Date: 20061018
  Receipt Date: 20060413
  Transmission Date: 20070319
  Serious: Yes (Other)
  Sender: FDA-Public Use
  Company Number: PHEH2006US04947

PATIENT
  Age: 57 Year
  Sex: Female

DRUGS (4)
  1. ZOMETA [Suspect]
     Indication: BREAST CANCER METASTATIC
     Dosage: 4 MG, ONCE/SINGLE, INFUSION
     Dates: start: 20060406
  2. TAXOTERE [Concomitant]
  3. EFFEXOR [Concomitant]
  4. DEXAMETHASONE TAB [Concomitant]

REACTIONS (1)
  - OEDEMA PERIPHERAL [None]
